FAERS Safety Report 18929112 (Version 2)
Quarter: 2021Q1

REPORT INFORMATION
  Report Type: Report from Study
  Country: US (occurrence: US)
  Receive Date: 20210223
  Receipt Date: 20210301
  Transmission Date: 20210420
  Serious: Yes (Death)
  Sender: FDA-Public Use
  Company Number: US-PFIZER INC-2021179048

PATIENT

DRUGS (4)
  1. VINCRISTINE SULFATE. [Suspect]
     Active Substance: VINCRISTINE SULFATE
     Indication: SMALL CELL LUNG CANCER LIMITED STAGE
     Dosage: 1.2 MG/M2, CYCLIC, ON DAY 1 (MAXIMUM DOSE, 2.0 MG)
     Route: 042
  2. DOXORUBICIN HCL [Suspect]
     Active Substance: DOXORUBICIN HYDROCHLORIDE
     Indication: SMALL CELL LUNG CANCER LIMITED STAGE
     Dosage: 40 MG/M2, CYCLIC, ON DAY 1
     Route: 042
  3. ETOPOSIDE. [Suspect]
     Active Substance: ETOPOSIDE
     Indication: SMALL CELL LUNG CANCER LIMITED STAGE
     Dosage: 60 MG/M2, CYCLIC, ON DAYS 1, 2, 3
     Route: 042
  4. CYCLOPHOSPHAMIDE. [Suspect]
     Active Substance: CYCLOPHOSPHAMIDE
     Indication: SMALL CELL LUNG CANCER LIMITED STAGE
     Dosage: 500 MG/M2, ON DAY 1
     Route: 042

REACTIONS (2)
  - Sepsis [Fatal]
  - Leukopenia [Fatal]
